FAERS Safety Report 5480158-6 (Version None)
Quarter: 2007Q4

REPORT INFORMATION
  Report Type: 
  Country: None (occurrence: None)
  Receive Date: 20071003
  Receipt Date: 20070115
  Transmission Date: 20080405
  Serious: Yes (Hospitalization, Disabling)
  Sender: FDA-Public Use
  Company Number: 6029068

PATIENT
  Age: 4 Year
  Sex: Female

DRUGS (10)
  1. CARBOPLATIN [Suspect]
     Indication: NEUROBLASTOMA
     Dosage: (750 MG/M2)
  2. CISPLATIN [Suspect]
     Indication: NEUROBLASTOMA
  3. VINCRISTINE [Suspect]
     Indication: NEUROBLASTOMA
     Dosage: (1,5MG/M2) (0,05 MG/KG)
  4. ETOPOSIDE [Suspect]
     Indication: NEUROBLASTOMA
     Dosage: (175 MG/M2 (175 MG/M2,1 IN 1 D)
  5. CYCLOPHOSPHAMIDE [Suspect]
     Indication: NEUROBLASTOMA
     Dosage: 1,05 MG/M2 (1,05 MG/M2,1 IN 1 D) (600 MG/M2)
  6. DOXORUBICIN HCL [Suspect]
     Indication: NEUROBLASTOMA
     Dosage: 25 MG/M2 (25 MG/M2,1 D)
  7. BUSULFAN(BUSULFAN) [Suspect]
     Indication: NEUROBLASTOMA
     Dosage: 150 MG/M2 (150 MG/M2,1 IN 1 D)
  8. MELPHALAN(MELPHALAN) [Suspect]
     Indication: NEUROBLASTOMA
     Dosage: (140 MG/M2)
  9. TRETINOIN [Concomitant]
  10. METHYLPREDNISOLONE [Concomitant]

REACTIONS (7)
  - ABDOMINAL NEOPLASM [None]
  - ACUTE MYELOID LEUKAEMIA [None]
  - CHROMOSOMAL MUTATION [None]
  - DRUG TOXICITY [None]
  - INFECTION [None]
  - NEUROBLASTOMA RECURRENT [None]
  - STEM CELL TRANSPLANT [None]
